FAERS Safety Report 8102280-8 (Version None)
Quarter: 2012Q1

REPORT INFORMATION
  Report Type: 
  Country: None (occurrence: None)
  Receive Date: 20120201
  Receipt Date: 20120126
  Transmission Date: 20120608
  Serious: No
  Sender: FDA-Public Use
  Company Number: US-PFIZER INC-2012023354

PATIENT
  Sex: Male
  Weight: 20.862 kg

DRUGS (3)
  1. GENOTROPIN [Suspect]
     Indication: OFF LABEL USE
     Dosage: 1.3 MG, DAILY
     Dates: start: 20111021, end: 20111027
  2. GENOTROPIN [Suspect]
     Indication: SILVER-RUSSELL SYNDROME
     Dosage: 1.0 MG, DAILY
     Dates: start: 20111102
  3. INTUNIV [Concomitant]
     Indication: ATTENTION DEFICIT/HYPERACTIVITY DISORDER
     Dosage: 1 MG, DAILY
     Dates: start: 20091101

REACTIONS (1)
  - HEADACHE [None]
